FAERS Safety Report 9852601 (Version 3)
Quarter: 2014Q1

REPORT INFORMATION
  Report Type: Spontaneous
  Country: IT (occurrence: IT)
  Receive Date: 20140129
  Receipt Date: 20140327
  Transmission Date: 20141002
  Serious: Yes (Hospitalization)
  Sender: FDA-Public Use
  Company Number: IT-ASTRAZENECA-2014SE04857

PATIENT
  Age: 32379 Day
  Sex: Female

DRUGS (8)
  1. LISINOPRIL [Suspect]
     Route: 048
     Dates: start: 20130101, end: 20131112
  2. AMLODIPINE [Suspect]
     Route: 065
     Dates: start: 20130101, end: 20131112
  3. FUROSEMIDE [Suspect]
     Route: 065
     Dates: start: 20130101, end: 20131112
  4. BISOPROLOL [Suspect]
     Route: 065
     Dates: start: 20130101, end: 20131112
  5. NITROGLYCERIN [Suspect]
     Route: 062
     Dates: start: 20130101, end: 20131112
  6. LORAZEPAM [Suspect]
     Route: 065
     Dates: start: 20130101, end: 20131112
  7. PLAVIX [Concomitant]
  8. ATORVASTATIN [Concomitant]

REACTIONS (1)
  - Syncope [Recovering/Resolving]
